FAERS Safety Report 11844119 (Version 1)
Quarter: 2015Q4

REPORT INFORMATION
  Report Type: Spontaneous
  Country: US (occurrence: US)
  Receive Date: 20151217
  Receipt Date: 20151217
  Transmission Date: 20160305
  Serious: No
  Sender: FDA-Public Use
  Company Number: US-IROKO PHARMACEUTICALS LLC-IND1-US-2009-0018

PATIENT
  Sex: Male

DRUGS (10)
  1. ATIVAN [Concomitant]
     Active Substance: LORAZEPAM
  2. PAXIL [Concomitant]
     Active Substance: PAROXETINE HYDROCHLORIDE
  3. NEPHRO-VITE RX [Concomitant]
  4. FOLATE [Concomitant]
     Active Substance: FOLATE SODIUM
  5. PRILOSEC [Concomitant]
     Active Substance: OMEPRAZOLE MAGNESIUM
  6. ASPIRIN. [Concomitant]
     Active Substance: ASPIRIN
  7. PHOSLO [Concomitant]
     Active Substance: CALCIUM ACETATE
  8. AMBIEN [Concomitant]
     Active Substance: ZOLPIDEM TARTRATE
  9. INDOCIN [Suspect]
     Active Substance: INDOMETHACIN\INDOMETHACIN SODIUM
  10. VIOXX [Concomitant]
     Active Substance: ROFECOXIB

REACTIONS (1)
  - Hypersensitivity [None]
